FAERS Safety Report 13912124 (Version 1)
Quarter: 2017Q3

REPORT INFORMATION
  Report Type: Spontaneous
  Country: US (occurrence: US)
  Receive Date: 20170828
  Receipt Date: 20170828
  Transmission Date: 20171127
  Serious: No
  Sender: FDA-Public Use
  Company Number: US-ROCHE-GNE323546

PATIENT
  Sex: Female

DRUGS (4)
  1. SOMATROPIN. [Suspect]
     Active Substance: SOMATROPIN
     Indication: SURGERY
  2. NUTROPIN AQ [Suspect]
     Active Substance: SOMATROPIN
     Dosage: 0.2 MG, QD
     Route: 058
     Dates: start: 20110824
  3. INSULIN [Concomitant]
     Active Substance: INSULIN NOS
     Indication: DIABETES MELLITUS
  4. NUTROPIN AQ [Suspect]
     Active Substance: SOMATROPIN
     Indication: SURGERY
     Dosage: 0.2 MG, QD
     Route: 058

REACTIONS (1)
  - Diarrhoea [Not Recovered/Not Resolved]
